FAERS Safety Report 11025061 (Version 1)
Quarter: 2015Q2

REPORT INFORMATION
  Report Type: Report from Study
  Country: US (occurrence: US)
  Receive Date: 20150414
  Receipt Date: 20150414
  Transmission Date: 20150821
  Serious: Yes (Other)
  Sender: FDA-Public Use
  Company Number: US-NOVOPROD-444970

PATIENT
  Age: 61 Year
  Sex: Male
  Weight: 103.63 kg

DRUGS (1)
  1. LIRAGLUTIDE FLEXPEN [Suspect]
     Active Substance: LIRAGLUTIDE
     Indication: TYPE 1 DIABETES MELLITUS
     Dosage: 1.2 MG, QD
     Route: 058
     Dates: start: 20140328, end: 20140411

REACTIONS (1)
  - Intraductal papillary mucinous neoplasm [Recovered/Resolved]

NARRATIVE: CASE EVENT DATE: 20141105
